FAERS Safety Report 25357397 (Version 1)
Quarter: 2025Q2

REPORT INFORMATION
  Report Type: Spontaneous
  Country: ES (occurrence: ES)
  Receive Date: 20250526
  Receipt Date: 20250526
  Transmission Date: 20250716
  Serious: Yes (Other)
  Sender: ACCORD
  Company Number: None

PATIENT
  Age: 72 Year
  Sex: Male
  Weight: 68 kg

DRUGS (9)
  1. OSELTAMIVIR [Suspect]
     Active Substance: OSELTAMIVIR
     Indication: Influenza
     Dosage: STRENGTH: 75 MG
     Dates: start: 20250226, end: 20250310
  2. CEFTRIAXONE [Suspect]
     Active Substance: CEFTRIAXONE
     Indication: Respiratory tract infection
     Dates: start: 20250226, end: 20250311
  3. LEVOFLOXACIN [Suspect]
     Active Substance: LEVOFLOXACIN
     Indication: Pneumonia
     Dosage: STRENGTH: 500 MG SOLUTION FOR INJECTION OR INFUSION 100 MLSOL
     Dates: start: 20250227, end: 20250306
  4. AZITHROMYCIN [Suspect]
     Active Substance: AZITHROMYCIN
     Indication: Pneumonia
     Dosage: STRENGTH: 500 MG SOLUTION FOR INJECTION OR INFUSION
     Dates: start: 20250306, end: 20250309
  5. VORICONAZOLE [Suspect]
     Active Substance: VORICONAZOLE
     Indication: Bronchopulmonary aspergillosis
     Dosage: STRENGTH: 200 MG
     Dates: start: 20250319, end: 20250323
  6. AMBISOME [Concomitant]
     Active Substance: AMPHOTERICIN B
     Indication: Bronchopulmonary aspergillosis
     Dosage: STRENGTH: 50 MG
     Dates: start: 20250310, end: 20250319
  7. AMBISOME [Concomitant]
     Active Substance: AMPHOTERICIN B
     Indication: Bronchopulmonary aspergillosis
     Dosage: STRENGTH: 50 MG
     Dates: start: 20250327, end: 20250404
  8. AMBISOME [Concomitant]
     Active Substance: AMPHOTERICIN B
     Indication: Bronchopulmonary aspergillosis
     Dosage: STRENGTH: 50 MG
     Dates: start: 20250405
  9. VORICONAZOLE [Suspect]
     Active Substance: VORICONAZOLE
     Indication: Bronchopulmonary aspergillosis
     Dosage: STRENGTH: 200 MG
     Dates: start: 20250324, end: 20250327

REACTIONS (1)
  - Toxic skin eruption [Recovered/Resolved]

NARRATIVE: CASE EVENT DATE: 20250327
